FAERS Safety Report 7374404-1 (Version None)
Quarter: 2011Q1

REPORT INFORMATION
  Report Type: 
  Country: None (occurrence: None)
  Receive Date: 20110325
  Receipt Date: 20110317
  Transmission Date: 20110831
  Serious: Yes (Other)
  Sender: FDA-Public Use
  Company Number: US-PFIZER INC-2010160620

PATIENT
  Sex: Male

DRUGS (6)
  1. TORADOL [Concomitant]
     Indication: BACK PAIN
     Dosage: UNK
     Dates: start: 20050101, end: 20100101
  2. ACETAMINOPHEN AND HYDROCODONE BITARTRATE [Concomitant]
     Indication: BACK PAIN
     Dosage: UNK
     Dates: start: 20050101, end: 20100101
  3. MOTRIN [Concomitant]
     Indication: BACK PAIN
     Dosage: UNK
     Dates: start: 20050101, end: 20100101
  4. CHANTIX [Suspect]
     Indication: SMOKING CESSATION THERAPY
     Dosage: STARTER MONTH PACK AND CONTINUING MONTH PACKS
     Dates: start: 20060801, end: 20070801
  5. CHANTIX [Suspect]
     Dosage: STARTER MONTH PACK
     Dates: start: 20081208, end: 20081216
  6. MOTRIN [Concomitant]
     Indication: MUSCULOSKELETAL PAIN

REACTIONS (9)
  - CONCUSSION [None]
  - INJURY [None]
  - INSOMNIA [None]
  - ROAD TRAFFIC ACCIDENT [None]
  - AMNESIA [None]
  - MUSCLE STRAIN [None]
  - HEADACHE [None]
  - LOSS OF CONSCIOUSNESS [None]
  - SYNCOPE [None]
